FAERS Safety Report 22637766 (Version 1)
Quarter: 2023Q2

REPORT INFORMATION
  Report Type: Spontaneous
  Country: US (occurrence: US)
  Receive Date: 20230626
  Receipt Date: 20230626
  Transmission Date: 20230722
  Serious: No
  Sender: FDA-Public Use
  Company Number: US-009507513-2306USA008842

PATIENT
  Age: 21 Year
  Sex: Male

DRUGS (2)
  1. NOXAFIL [Suspect]
     Active Substance: POSACONAZOLE
     Indication: Mycotic endophthalmitis
     Dosage: UNK
     Route: 048
  2. AMPHOTERICIN B [Suspect]
     Active Substance: AMPHOTERICIN B
     Indication: Mycotic endophthalmitis
     Dosage: UNK

REACTIONS (1)
  - Off label use [Unknown]
